FAERS Safety Report 10619468 (Version 1)
Quarter: 2014Q4

REPORT INFORMATION
  Report Type: Report from Study
  Country: FR (occurrence: None)
  Receive Date: 20141126
  Receipt Date: 20141126
  Transmission Date: 20150529
  Serious: Yes (Other)
  Sender: FDA-Public Use
  Company Number: 2014-FR-015443

PATIENT
  Age: 25 Year
  Sex: Female
  Weight: 53 kg

DRUGS (4)
  1. XYREM [Suspect]
     Active Substance: SODIUM OXYBATE
     Indication: INSOMNIA
     Dates: start: 20140702, end: 201409
  2. AMPHETAMINE (AMPHETAMINE) [Concomitant]
     Active Substance: AMPHETAMINE
  3. MODIODAL (MODAFINIL) [Concomitant]
  4. RITALINE (METHYLPHENIDATE HYDROCHLORIDE) [Concomitant]

REACTIONS (5)
  - Inappropriate schedule of drug administration [None]
  - Off label use [None]
  - Decreased appetite [None]
  - Weight decreased [None]
  - Drug tolerance [None]

NARRATIVE: CASE EVENT DATE: 2014
